FAERS Safety Report 7898554-6 (Version None)
Quarter: 2011Q4

REPORT INFORMATION
  Report Type: 
  Country: None (occurrence: None)
  Receive Date: 20111107
  Receipt Date: 20111104
  Transmission Date: 20120403
  Serious: Yes (Hospitalization)
  Sender: FDA-Public Use
  Company Number: US-BRACCO-007042

PATIENT
  Sex: Male

DRUGS (3)
  1. ISOVUE-M 200 [Suspect]
     Indication: PAIN IN EXTREMITY
     Route: 037
     Dates: start: 20111025, end: 20111025
  2. ISOVUE-M 200 [Suspect]
     Indication: SPINAL MYELOGRAM
     Route: 037
     Dates: start: 20111025, end: 20111025
  3. LIDOCAINE [Suspect]
     Route: 058
     Dates: start: 20111025, end: 20111025

REACTIONS (1)
  - INFECTION [None]
